FAERS Safety Report 7254225-0 (Version None)
Quarter: 2011Q1

REPORT INFORMATION
  Report Type: 
  Country: None (occurrence: None)
  Receive Date: 20110129
  Receipt Date: 20100105
  Transmission Date: 20110831
  Serious: Yes (Hospitalization, Other)
  Sender: FDA-Public Use
  Company Number: US-ABBOTT-10P-163-0617618-00

PATIENT
  Sex: Female
  Weight: 110.32 kg

DRUGS (11)
  1. STOVITE [Concomitant]
     Indication: EYE DISORDER
     Dosage: (HIGH POTENCY VITAMIN)
  2. SINGULAIR [Concomitant]
     Indication: PRODUCT USED FOR UNKNOWN INDICATION
     Route: 048
  3. DIOVAN [Concomitant]
     Indication: PRODUCT USED FOR UNKNOWN INDICATION
  4. OMEPRAZOLE [Concomitant]
     Indication: PRODUCT USED FOR UNKNOWN INDICATION
     Route: 048
  5. ATARAX [Concomitant]
     Indication: PRURITUS
  6. HUMIRA [Suspect]
     Indication: PSORIASIS
     Dosage: HUMIRA PEN - PS - 7 MONTHS 40MG EOW
     Route: 058
     Dates: end: 20091222
  7. FUROSEMIDE [Concomitant]
     Indication: PRODUCT USED FOR UNKNOWN INDICATION
     Route: 048
  8. QUININE SULFATE [Concomitant]
     Indication: MUSCLE SPASMS
  9. PROTONIX [Concomitant]
     Indication: PRODUCT USED FOR UNKNOWN INDICATION
     Route: 048
  10. ZOCOR [Concomitant]
     Indication: BLOOD CHOLESTEROL INCREASED
     Route: 048
  11. DIAZEPAM [Concomitant]
     Indication: PRODUCT USED FOR UNKNOWN INDICATION
     Route: 048

REACTIONS (2)
  - DYSPNOEA [None]
  - PNEUMONIA [None]
